FAERS Safety Report 6980130-0 (Version None)
Quarter: 2010Q3

REPORT INFORMATION
  Report Type: 
  Country: None (occurrence: None)
  Receive Date: 20100908
  Receipt Date: 20100831
  Transmission Date: 20110219
  Serious: Yes (Hospitalization, Other)
  Sender: FDA-Public Use
  Company Number: 014048

PATIENT
  Sex: Female
  Weight: 57.3 kg

DRUGS (19)
  1. CERTOLIZUMAB PEGOL (CERTOLIZUMAB PEGOL) [Suspect]
     Indication: RHEUMATOID ARTHRITIS
     Dosage: (TWICE MONTHLY SUBCUTANEOUS)
     Route: 058
     Dates: start: 20100316, end: 20100607
  2. METHOTREXATE [Concomitant]
  3. METHYLPREDNISOLONE [Concomitant]
  4. CELECOXIB [Concomitant]
  5. ACETAMINOPHEN [Concomitant]
  6. FOLIC ACID [Concomitant]
  7. JOINTCARE [Concomitant]
  8. AVOCADO-SOYA UNSAPONIFIABLE (ALL OTHER THERAPEUTIC PRODUCTS) [Concomitant]
  9. FOSAMAX PLUS D [Concomitant]
  10. ADCAL /00056901/ [Concomitant]
  11. LIMAPROST [Concomitant]
  12. RANITIDINE HYDROCHLORIDE [Concomitant]
  13. FAMOTIDINE [Concomitant]
  14. ASPIRIN /01428701/ [Concomitant]
  15. BENPROPERINE [Concomitant]
  16. BROMHEXINE HYDROCHLORIDE [Concomitant]
  17. AUGMENTIN '125' [Concomitant]
  18. LEVOCETIRIZINE DIHYDROCHLORIDE [Concomitant]
  19. FERROUS SULFATE [Concomitant]

REACTIONS (18)
  - ANAEMIA MEGALOBLASTIC [None]
  - BRONCHIECTASIS [None]
  - BRONCHITIS [None]
  - CEREBRAL ARTERY STENOSIS [None]
  - CEREBRAL MICROANGIOPATHY [None]
  - DIZZINESS [None]
  - ESCHERICHIA TEST POSITIVE [None]
  - GASTRITIS [None]
  - GASTROINTESTINAL HAEMORRHAGE [None]
  - HYPOACUSIS [None]
  - LUNG NEOPLASM [None]
  - NAUSEA [None]
  - PSEUDOMONAS TEST POSITIVE [None]
  - PYELONEPHRITIS ACUTE [None]
  - RENAL FAILURE ACUTE [None]
  - SINUSITIS [None]
  - VERTEBRAL ARTERY STENOSIS [None]
  - VOMITING [None]
